FAERS Safety Report 4267678-7 (Version None)
Quarter: 2004Q1

REPORT INFORMATION
  Report Type: 
  Country: None (occurrence: None)
  Receive Date: 20040109
  Receipt Date: 20031127
  Transmission Date: 20041129
  Serious: Yes (Life-Threatening, Hospitalization)
  Sender: FDA-Public Use
  Company Number: 200313056DE

PATIENT
  Age: 78 Year
  Sex: Female
  Weight: 81 kg

DRUGS (10)
  1. CLEXANE MULTI INJEKTIONSLOESUNG [Suspect]
     Indication: DEEP VEIN THROMBOSIS
     Route: 058
     Dates: start: 20030912, end: 20030921
  2. VALORON [Concomitant]
  3. ZOCOR [Concomitant]
  4. AQUAPHOR TABLET [Concomitant]
  5. CONCOR [Concomitant]
  6. URIPURINOL [Concomitant]
  7. LISINOPRIL [Concomitant]
  8. FERRO-FOLSAN [Concomitant]
  9. TALVOSILEN [Concomitant]
  10. CELEBREX [Concomitant]

REACTIONS (9)
  - ANAEMIA [None]
  - BLOOD ALKALINE PHOSPHATASE INCREASED [None]
  - BLOOD POTASSIUM INCREASED [None]
  - BLOOD SODIUM DECREASED [None]
  - HAEMATOMA [None]
  - HYDRONEPHROSIS [None]
  - MUSCLE HAEMORRHAGE [None]
  - PLATELET COUNT DECREASED [None]
  - URINARY RETENTION [None]
